FAERS Safety Report 9410609 (Version 2)
Quarter: 2013Q3

REPORT INFORMATION
  Report Type: Other
  Country: IN (occurrence: IN)
  Receive Date: 20130719
  Receipt Date: 20130725
  Transmission Date: 20140515
  Serious: Yes (Death, Hospitalization)
  Sender: FDA-Public Use
  Company Number: IN-BRISTOL-MYERS SQUIBB COMPANY-19081926

PATIENT
  Age: 18 Year
  Sex: Male

DRUGS (6)
  1. DASATINIB [Suspect]
     Indication: ACUTE LYMPHOCYTIC LEUKAEMIA
  2. PREDNISOLONE [Concomitant]
     Indication: ACUTE LYMPHOCYTIC LEUKAEMIA
     Dosage: FROM DAY 1
  3. VINCRISTINE [Concomitant]
     Indication: ACUTE LYMPHOCYTIC LEUKAEMIA
     Dosage: FROM DAY 8
  4. DAUNORUBICIN [Concomitant]
     Indication: ACUTE LYMPHOCYTIC LEUKAEMIA
     Dosage: FROM DAY 8
  5. METHOTREXATE [Concomitant]
     Route: 037
  6. ALLOPURINOL [Concomitant]

REACTIONS (2)
  - Febrile neutropenia [Fatal]
  - Bone marrow disorder [Unknown]
